FAERS Safety Report 10155181 (Version 1)
Quarter: 2014Q2

REPORT INFORMATION
  Report Type: Spontaneous
  Country: US (occurrence: None)
  Receive Date: 20140505
  Receipt Date: 20140505
  Transmission Date: 20141212
  Serious: Yes (Hospitalization)
  Sender: FDA-Public Use
  Company Number: None

PATIENT
  Age: 54 Year
  Sex: Female

DRUGS (11)
  1. STELARA 45 MG SUB Q FOR 1 INJECTION JANSSEN [Suspect]
     Indication: PRODUCT USED FOR UNKNOWN INDICATION
     Dosage: 45 MG, EVERY 12 WEEKS, SUB Q
     Route: 058
     Dates: start: 20140115
  2. VENLAFAXINE [Concomitant]
  3. ATENOLOL [Concomitant]
  4. ISONIAZID [Concomitant]
  5. PRIFTIN [Concomitant]
  6. SIMVASTATIN [Concomitant]
  7. VITAMIN B6 [Concomitant]
  8. FISH OIL [Concomitant]
  9. PSEUDOPHEDRINE [Concomitant]
  10. ZYRTEC [Concomitant]
  11. LEVETIRACETAM [Concomitant]

REACTIONS (5)
  - Acute respiratory distress syndrome [None]
  - Cerebral haemorrhage [None]
  - Septic shock [None]
  - Immunosuppression [None]
  - Escherichia bacteraemia [None]
